FAERS Safety Report 9329002 (Version 1)
Quarter: 2013Q2

REPORT INFORMATION
  Report Type: Spontaneous
  Country: US (occurrence: US)
  Receive Date: 20130604
  Receipt Date: 20130604
  Transmission Date: 20140414
  Serious: No
  Sender: FDA-Public Use
  Company Number: US-SANOFI-AVENTIS-2013SA040125

PATIENT
  Age: 60 Year
  Sex: Female

DRUGS (2)
  1. LANTUS [Suspect]
     Dates: start: 2007
  2. BYETTA [Suspect]
     Dates: start: 2007

REACTIONS (6)
  - Diarrhoea [Recovered/Resolved]
  - Weight decreased [Unknown]
  - Pain [Unknown]
  - Pancreatitis [Unknown]
  - Increased tendency to bruise [Unknown]
  - Injection site pain [Unknown]
